FAERS Safety Report 8064276-4 (Version None)
Quarter: 2011Q4

REPORT INFORMATION
  Report Type: 
  Country: None (occurrence: None)
  Receive Date: 20111221
  Receipt Date: 20110811
  Transmission Date: 20120403
  Serious: Yes (Other)
  Sender: FDA-Public Use
  Company Number: 2011S1000063

PATIENT
  Age: 23 Year
  Sex: Male

DRUGS (4)
  1. KRYSTEXXA [Suspect]
     Indication: GOUT
     Dosage: 8 MG;X1; IV
     Route: 042
     Dates: start: 20110811, end: 20110811
  2. DECADRON [Concomitant]
  3. ALLOPURINOL [Concomitant]
  4. BENADRYL [Concomitant]

REACTIONS (1)
  - ANAPHYLACTIC REACTION [None]
